FAERS Safety Report 6720368-0 (Version None)
Quarter: 2010Q2

REPORT INFORMATION
  Report Type: 
  Country: None (occurrence: None)
  Receive Date: 20100511
  Receipt Date: 20100430
  Transmission Date: 20101027
  Serious: Yes (Other)
  Sender: FDA-Public Use
  Company Number: US-PFIZER INC-2010055645

PATIENT
  Sex: Male

DRUGS (1)
  1. ZITHROMAX [Suspect]

REACTIONS (2)
  - ABDOMINAL DISCOMFORT [None]
  - LYME DISEASE [None]
